FAERS Safety Report 7708430-7 (Version None)
Quarter: 2011Q3

REPORT INFORMATION
  Report Type: 
  Country: None (occurrence: None)
  Receive Date: 20110825
  Receipt Date: 20110404
  Transmission Date: 20111222
  Serious: Yes (Hospitalization, Other)
  Sender: FDA-Public Use
  Company Number: FR-BAYER-2011-029516

PATIENT
  Age: 29 Year
  Sex: Female

DRUGS (2)
  1. JASMINE [Suspect]
     Indication: ORAL CONTRACEPTION
     Dosage: UNK
     Route: 048
  2. DIANE [Suspect]

REACTIONS (4)
  - HEREDITARY ANGIOEDEMA [None]
  - ABDOMINAL PAIN [None]
  - TONGUE OEDEMA [None]
  - SUBILEUS [None]
